FAERS Safety Report 23515611 (Version 2)
Quarter: 2024Q1

REPORT INFORMATION
  Report Type: Other
  Country: DE (occurrence: DE)
  Receive Date: 20240213
  Receipt Date: 20240227
  Transmission Date: 20240410
  Serious: Yes (Other)
  Sender: FDA-Public Use
  Company Number: None

PATIENT
  Age: 77 Year
  Sex: Male
  Weight: 102 kg

DRUGS (8)
  1. CLEVIPREX [Suspect]
     Active Substance: CLEVIDIPINE
     Indication: Aortic dissection
     Dosage: UNK
     Route: 042
     Dates: start: 20231128, end: 20231204
  2. CLEVIPREX [Suspect]
     Active Substance: CLEVIDIPINE
     Indication: Blood pressure management
  3. MOXONIDINE [Concomitant]
     Active Substance: MOXONIDINE
     Indication: Blood pressure management
     Dosage: UNK
     Route: 048
     Dates: start: 20231124, end: 20231207
  4. URAPIDIL [Concomitant]
     Active Substance: URAPIDIL
     Indication: Blood pressure management
     Dosage: UNK
     Route: 042
     Dates: start: 20231122, end: 20231207
  5. AMLODIPINE [Concomitant]
     Active Substance: AMLODIPINE BESYLATE
     Indication: Blood pressure management
     Dosage: UNK
     Route: 048
     Dates: start: 20231122, end: 20231207
  6. VALSARTAN [Concomitant]
     Active Substance: VALSARTAN
     Indication: Blood pressure management
     Dosage: UNK
     Route: 048
     Dates: start: 20231122, end: 20231207
  7. HYDROCHLOROTHIAZIDE [Concomitant]
     Active Substance: HYDROCHLOROTHIAZIDE
     Indication: Blood pressure management
     Dosage: 12.5 MILLIGRAM
     Route: 048
     Dates: start: 20231122, end: 20231207
  8. METOPROLOL FUMARATE [Concomitant]
     Active Substance: METOPROLOL FUMARATE
     Indication: Blood pressure management
     Dosage: UNK
     Route: 048
     Dates: start: 20231122, end: 20231207

REACTIONS (2)
  - Pancreatitis [Recovered/Resolved]
  - Lipase increased [Recovered/Resolved]

NARRATIVE: CASE EVENT DATE: 20231204
